FAERS Safety Report 22616773 (Version 1)
Quarter: 2023Q2

REPORT INFORMATION
  Report Type: Spontaneous
  Country: US (occurrence: US)
  Receive Date: 20230619
  Receipt Date: 20230619
  Transmission Date: 20230721
  Serious: No
  Sender: FDA-Public Use
  Company Number: US-ABBVIE-5291173

PATIENT
  Sex: Female

DRUGS (1)
  1. LEXAPRO [Suspect]
     Active Substance: ESCITALOPRAM OXALATE
     Indication: Product used for unknown indication
     Route: 048

REACTIONS (10)
  - Depression [Unknown]
  - Lymphadenopathy [Unknown]
  - Pain in extremity [Unknown]
  - Arthralgia [Unknown]
  - Neck pain [Unknown]
  - Skin lesion [Unknown]
  - Swelling [Unknown]
  - Osteoarthritis [Unknown]
  - Vertebral foraminal stenosis [Unknown]
  - Haemangioma [Unknown]

NARRATIVE: CASE EVENT DATE: 20230501
